FAERS Safety Report 25280654 (Version 3)
Quarter: 2025Q2

REPORT INFORMATION
  Report Type: Spontaneous
  Country: US (occurrence: US)
  Receive Date: 20250508
  Receipt Date: 20250605
  Transmission Date: 20250716
  Serious: No
  Sender: ROCHE
  Company Number: US-ROCHE-10000275709

PATIENT
  Age: 69 Year
  Sex: Female
  Weight: 63.5 kg

DRUGS (21)
  1. XOLAIR [Suspect]
     Active Substance: OMALIZUMAB
     Indication: Urticaria
     Dosage: LAST XOLAIR DOSE WAS RECEIVED ON 08-APR-2025,?NEXT XOLAIR DOSE WILL BE ON 12-MAY-2025.
     Route: 058
     Dates: start: 20250110
  2. XOLAIR [Suspect]
     Active Substance: OMALIZUMAB
     Route: 058
  3. TRIAMCINOLONE [Concomitant]
     Active Substance: TRIAMCINOLONE
  4. CORTISONE [Concomitant]
     Active Substance: CORTISONE
  5. CALAMINE [Concomitant]
     Active Substance: CALAMINE\FERRIC OXIDE RED\ZINC OXIDE
  6. ZOLPIDEM [Concomitant]
     Active Substance: ZOLPIDEM TARTRATE
  7. TELMISARTAN [Concomitant]
     Active Substance: TELMISARTAN
  8. AMLODIPINE [Concomitant]
     Active Substance: AMLODIPINE BESYLATE
  9. XANAX [Concomitant]
     Active Substance: ALPRAZOLAM
  10. VITAMIN C [Concomitant]
     Active Substance: ASCORBIC ACID
  11. CALCIUM [Concomitant]
     Active Substance: CALCIUM
  12. VITAMIN D3 [Concomitant]
     Active Substance: CHOLECALCIFEROL
  13. MAGNESIUM [Concomitant]
     Active Substance: MAGNESIUM
  14. BERBERINE [Concomitant]
     Active Substance: BERBERINE
  15. DIETARY SUPPLEMENT\HERBALS\MILK THISTLE [Concomitant]
     Active Substance: MILK THISTLE
  16. DIETARY SUPPLEMENT [Concomitant]
     Active Substance: DIETARY SUPPLEMENT
  17. XYZAL [Concomitant]
     Active Substance: LEVOCETIRIZINE DIHYDROCHLORIDE
  18. EPINEPHRINE [Concomitant]
     Active Substance: EPINEPHRINE
  19. ALPRAZOLAM [Concomitant]
     Active Substance: ALPRAZOLAM
  20. FLUOXETINE [Concomitant]
     Active Substance: FLUOXETINE HYDROCHLORIDE
  21. TRIAMCINOLONE ACETONIDE [Concomitant]
     Active Substance: TRIAMCINOLONE ACETONIDE

REACTIONS (3)
  - Skin discolouration [Not Recovered/Not Resolved]
  - Rash erythematous [Not Recovered/Not Resolved]
  - Ecchymosis [Not Recovered/Not Resolved]
